FAERS Safety Report 9896499 (Version 1)
Quarter: 2014Q1

REPORT INFORMATION
  Report Type: Spontaneous
  Country: US (occurrence: US)
  Receive Date: 20140213
  Receipt Date: 20140213
  Transmission Date: 20141002
  Serious: No
  Sender: FDA-Public Use
  Company Number: US-BRISTOL-MYERS SQUIBB COMPANY-18838441

PATIENT
  Age: 50 Year
  Sex: Female
  Weight: 103.85 kg

DRUGS (1)
  1. ABATACEPT SUBQ INJECTION 125MG/ML [Suspect]
     Indication: RHEUMATOID ARTHRITIS
     Dosage: 2-3 DOSES .?ALSO TAKEN IV ROUTE IN 2012 ORENICA 1000MG FOR EVERY 4 WEEKS.?AUG,SEP+OCT.
     Route: 058

REACTIONS (1)
  - Rheumatoid arthritis [Unknown]
